FAERS Safety Report 7128940-3 (Version None)
Quarter: 2010Q4

REPORT INFORMATION
  Report Type: 
  Country: None (occurrence: None)
  Receive Date: 20101130
  Receipt Date: 20101125
  Transmission Date: 20110411
  Serious: Yes (Hospitalization)
  Sender: FDA-Public Use
  Company Number: B0686093A

PATIENT

DRUGS (4)
  1. AUGMENTIN [Suspect]
     Indication: TOOTH ABSCESS
     Route: 048
     Dates: start: 20100514, end: 20100518
  2. IBUPROFEN [Suspect]
     Indication: TOOTH ABSCESS
     Route: 048
     Dates: start: 20100514, end: 20100518
  3. DAFALGAN [Suspect]
     Indication: TOOTH ABSCESS
     Route: 048
     Dates: start: 20100514, end: 20100518
  4. LANSOPRAZOLE [Concomitant]
     Route: 048

REACTIONS (6)
  - ANAPHYLACTOID REACTION [None]
  - HYPOTENSION [None]
  - LOSS OF CONSCIOUSNESS [None]
  - PRURITUS [None]
  - SKIN TEST NEGATIVE [None]
  - URTICARIA [None]
